FAERS Safety Report 9199295 (Version 2)
Quarter: 2013Q2

REPORT INFORMATION
  Report Type: Spontaneous
  Country: US (occurrence: US)
  Receive Date: 20130329
  Receipt Date: 20130408
  Transmission Date: 20140414
  Serious: No
  Sender: FDA-Public Use
  Company Number: US-009507513-1303USA013911

PATIENT
  Age: 66 Year
  Sex: Female
  Weight: 50.79 kg

DRUGS (2)
  1. MIRALAX [Suspect]
     Indication: CONSTIPATION
     Dosage: UNK, UNKNOWN
     Route: 048
     Dates: start: 20130319
  2. MIRALAX [Suspect]
     Indication: MEDICAL OBSERVATION
     Dosage: 17 G, QD
     Dates: start: 20130316, end: 20130317

REACTIONS (2)
  - Flatulence [Recovered/Resolved]
  - Faecal incontinence [Recovered/Resolved]
